FAERS Safety Report 6348362-2 (Version None)
Quarter: 2009Q3

REPORT INFORMATION
  Report Type: 
  Country: None (occurrence: None)
  Receive Date: 20090908
  Receipt Date: 20090820
  Transmission Date: 20100115
  Serious: Yes (Death, Hospitalization)
  Sender: FDA-Public Use
  Company Number: 2009AL000704

PATIENT
  Age: 56 Year
  Sex: Male

DRUGS (15)
  1. DIGOXIN [Suspect]
     Indication: HEART RATE IRREGULAR
     Dosage: 0.25MG, DAILY, PO
     Route: 048
  2. BENAZEPRIL HYDROCHLORIDE [Concomitant]
  3. TOPROL-XL [Concomitant]
  4. ZOCOR [Concomitant]
  5. IRON [Concomitant]
  6. PROPOXYPHENE HCL CAP [Concomitant]
  7. SINGULAIR [Concomitant]
  8. ATACAND [Concomitant]
  9. QUINIDINE HCL [Concomitant]
  10. BIAGRA [Concomitant]
  11. LOTRISONE [Concomitant]
  12. SIMVASTATIN [Concomitant]
  13. ACTOS [Concomitant]
  14. METFORMIN HCL [Concomitant]
  15. FUROSEMIDE [Concomitant]

REACTIONS (16)
  - ABDOMINAL DISCOMFORT [None]
  - ANXIETY [None]
  - BLOOD CHOLESTEROL INCREASED [None]
  - BLOOD GLUCOSE INCREASED [None]
  - BLOOD TRIGLYCERIDES INCREASED [None]
  - BUNDLE BRANCH BLOCK [None]
  - CHEST PAIN [None]
  - ECONOMIC PROBLEM [None]
  - EPIGASTRIC DISCOMFORT [None]
  - GOUT [None]
  - MYOCARDIAL INFARCTION [None]
  - PAIN [None]
  - PARACENTESIS [None]
  - PROSTATIC SPECIFIC ANTIGEN INCREASED [None]
  - RHINITIS ALLERGIC [None]
  - THERAPEUTIC AGENT TOXICITY [None]
